FAERS Safety Report 14119487 (Version 1)
Quarter: 2017Q4

REPORT INFORMATION
  Report Type: Spontaneous
  Country: US (occurrence: None)
  Receive Date: 20171024
  Receipt Date: 20171024
  Transmission Date: 20180321
  Serious: Yes (Hospitalization)
  Sender: FDA-Public Use
  Company Number: None

PATIENT
  Age: 58 Year
  Sex: Male
  Weight: 85.73 kg

DRUGS (1)
  1. GADOBENATE [Suspect]
     Active Substance: GADOBENATE DIMEGLUMINE
     Indication: ANGIOGRAM
     Route: 042
     Dates: start: 20171018, end: 20171018

REACTIONS (8)
  - Nausea [None]
  - Epigastric discomfort [None]
  - Loss of consciousness [None]
  - Dyskinesia [None]
  - Contrast media reaction [None]
  - Hypoglycaemia [None]
  - Choking [None]
  - Eye movement disorder [None]

NARRATIVE: CASE EVENT DATE: 20171018
